FAERS Safety Report 7277661-5 (Version None)
Quarter: 2011Q1

REPORT INFORMATION
  Report Type: 
  Country: None (occurrence: None)
  Receive Date: 20110207
  Receipt Date: 20110125
  Transmission Date: 20110831
  Serious: Yes (Other)
  Sender: FDA-Public Use
  Company Number: US-SANOFI-AVENTIS-2011SA005018

PATIENT
  Age: 17 Year
  Sex: Male

DRUGS (2)
  1. ASPIRIN [Concomitant]
     Route: 048
  2. MULTAQ [Suspect]
     Indication: ATRIAL FIBRILLATION
     Route: 048
     Dates: start: 20100701

REACTIONS (4)
  - OFF LABEL USE [None]
  - HYPOTHYROIDISM [None]
  - CONDITION AGGRAVATED [None]
  - ATRIAL FIBRILLATION [None]
